FAERS Safety Report 22614774 (Version 1)
Quarter: 2023Q2

REPORT INFORMATION
  Report Type: Spontaneous
  Country: FR (occurrence: FR)
  Receive Date: 20230619
  Receipt Date: 20230619
  Transmission Date: 20230722
  Serious: Yes (Hospitalization)
  Sender: FDA-Public Use
  Company Number: FR-AMGEN-FRASP2022229839

PATIENT
  Age: 66 Year
  Sex: Male
  Weight: 67 kg

DRUGS (1)
  1. SOTORASIB [Suspect]
     Active Substance: SOTORASIB
     Indication: Lung adenocarcinoma stage IV
     Dosage: 960 MILLIGRAM, QD OR 8 TABLETS IN A SINGLE DOSE
     Route: 048
     Dates: start: 20211126, end: 20220217

REACTIONS (2)
  - Colitis microscopic [Recovering/Resolving]
  - Diarrhoea [Recovered/Resolved]

NARRATIVE: CASE EVENT DATE: 20220201
